FAERS Safety Report 25254650 (Version 1)
Quarter: 2025Q2

REPORT INFORMATION
  Report Type: Spontaneous
  Country: FR (occurrence: FR)
  Receive Date: 20250430
  Receipt Date: 20250430
  Transmission Date: 20250717
  Serious: Yes (Hospitalization)
  Sender: ORGANON
  Company Number: None

PATIENT
  Age: 60 Year
  Sex: Male
  Weight: 86 kg

DRUGS (5)
  1. MONTELUKAST SODIUM [Suspect]
     Active Substance: MONTELUKAST SODIUM
     Indication: Product used for unknown indication
     Route: 048
     Dates: start: 20250217, end: 20250223
  2. REVLIMID [Suspect]
     Active Substance: LENALIDOMIDE
     Indication: Plasma cell myeloma
     Dosage: 1 DOSAGE FORM, QD (25 MG / DAY)
     Route: 048
     Dates: start: 20250203, end: 20250223
  3. PANTOPRAZOLE SODIUM [Suspect]
     Active Substance: PANTOPRAZOLE SODIUM
     Indication: Plasma cell myeloma
     Dosage: 1 DOSAGE FORM, QD (40 MG/DAY)
     Route: 048
     Dates: start: 20250203, end: 20250223
  4. VALACYCLOVIR HYDROCHLORIDE [Suspect]
     Active Substance: VALACYCLOVIR HYDROCHLORIDE
     Indication: Prophylaxis
     Dosage: 2 DOSAGE FORM, QD (2 TIMES A DAY FROM)
     Route: 048
     Dates: start: 20250203, end: 20250223
  5. DESLORATADINE [Suspect]
     Active Substance: DESLORATADINE
     Indication: Prophylaxis
     Route: 048
     Dates: start: 20250217, end: 20250223

REACTIONS (1)
  - Acute generalised exanthematous pustulosis [Recovered/Resolved]

NARRATIVE: CASE EVENT DATE: 20250219
